FAERS Safety Report 18710149 (Version 2)
Quarter: 2021Q1

REPORT INFORMATION
  Report Type: Other
  Country: GB (occurrence: GB)
  Receive Date: 20210106
  Receipt Date: 20210302
  Transmission Date: 20210419
  Serious: Yes (Other)
  Sender: FDA-Public Use
  Company Number: GB-IPCA LABORATORIES LIMITED-IPC-2020-GB-003740

PATIENT

DRUGS (14)
  1. AMLODIPINE [Suspect]
     Active Substance: AMLODIPINE BESYLATE
     Indication: PULMONARY EMBOLISM
     Dosage: UNK
     Route: 065
  2. SIMVASTATIN. [Suspect]
     Active Substance: SIMVASTATIN
     Indication: PROSTATE CANCER
     Dosage: UNK
     Route: 065
  3. LISINOPRIL. [Suspect]
     Active Substance: LISINOPRIL
     Indication: PULMONARY EMBOLISM
     Dosage: UNK
     Route: 065
  4. LEUPRORELIN [Suspect]
     Active Substance: LEUPROLIDE ACETATE
     Indication: PULMONARY EMBOLISM
     Dosage: UNK
     Route: 065
  5. NYSTATIN. [Suspect]
     Active Substance: NYSTATIN
     Indication: PROSTATE CANCER
     Dosage: UNK
     Route: 065
  6. LUPRON DEPOT [Suspect]
     Active Substance: LEUPROLIDE ACETATE
     Indication: PULMONARY EMBOLISM
     Dosage: UNK
     Route: 065
     Dates: start: 2018
  7. CARBOPLATIN;ETOPOSIDE [Concomitant]
     Indication: PROSTATE CANCER
     Dosage: UNK
     Route: 065
     Dates: start: 201912
  8. ALLOPURINOL. [Suspect]
     Active Substance: ALLOPURINOL
     Indication: PULMONARY EMBOLISM
  9. ALLOPURINOL. [Suspect]
     Active Substance: ALLOPURINOL
     Indication: PROSTATE CANCER
     Dosage: UNK
     Route: 065
  10. EDOXABAN [Suspect]
     Active Substance: EDOXABAN TOSYLATE
     Indication: PULMONARY EMBOLISM
     Dosage: UNK
     Route: 065
  11. SIMVASTATIN. [Suspect]
     Active Substance: SIMVASTATIN
     Indication: PULMONARY EMBOLISM
  12. ATORVASTATIN [Suspect]
     Active Substance: ATORVASTATIN
     Indication: PROSTATE CANCER
  13. ATORVASTATIN [Suspect]
     Active Substance: ATORVASTATIN
     Indication: PULMONARY EMBOLISM
     Dosage: UNK
     Route: 065
  14. CARBOPLATIN;ETOPOSIDE [Concomitant]
     Indication: CHEMOTHERAPY

REACTIONS (10)
  - Blood electrolytes abnormal [Unknown]
  - Hydronephrosis [Unknown]
  - Pulmonary embolism [Unknown]
  - Pelvic mass [Unknown]
  - Disease progression [Unknown]
  - Lymphadenopathy [Unknown]
  - Blood urea abnormal [Unknown]
  - Off label use [Unknown]
  - Prostate cancer recurrent [Unknown]
  - Malignant transformation [Unknown]

NARRATIVE: CASE EVENT DATE: 201912
